FAERS Safety Report 18217793 (Version 1)
Quarter: 2020Q3

REPORT INFORMATION
  Report Type: Spontaneous
  Country: US (occurrence: US)
  Receive Date: 20200831
  Receipt Date: 20200831
  Transmission Date: 20201103
  Serious: Yes (Hospitalization)
  Sender: FDA-Public Use
  Company Number: None

PATIENT
  Age: 59 Year
  Sex: Female

DRUGS (1)
  1. CHLORTHALIDONE (CHLORTHALIDONE 50MG TAB) [Suspect]
     Active Substance: CHLORTHALIDONE
     Dates: start: 20200618

REACTIONS (2)
  - Hypokalaemia [None]
  - Hyponatraemia [None]

NARRATIVE: CASE EVENT DATE: 20200618
